FAERS Safety Report 4749870-8 (Version None)
Quarter: 2005Q3

REPORT INFORMATION
  Report Type: 
  Country: None (occurrence: None)
  Receive Date: 20050822
  Receipt Date: 20050426
  Transmission Date: 20060218
  Serious: Yes (Hospitalization)
  Sender: FDA-Public Use
  Company Number: US-BRISTOL-MYERS SQUIBB COMPANY-12947230

PATIENT
  Age: 64 Year
  Sex: Male
  Weight: 58 kg

DRUGS (9)
  1. CETUXIMAB [Suspect]
     Indication: NON-SMALL CELL LUNG CANCER
     Dosage: 412 MG.
     Route: 042
     Dates: start: 20050421, end: 20050421
  2. CARBOPLATIN [Suspect]
     Indication: NON-SMALL CELL LUNG CANCER
     Dosage: 5 AUC.
     Route: 042
     Dates: start: 20050421, end: 20050421
  3. DOCETAXEL [Suspect]
     Indication: NON-SMALL CELL LUNG CANCER
     Dosage: 98 MG.
     Route: 042
     Dates: start: 20050421, end: 20050421
  4. DEXAMETHASONE [Concomitant]
     Indication: PROPHYLAXIS
     Dosage: FOR TAXOTERE.
     Route: 048
     Dates: start: 20050216
  5. DOCUSATE SODIUM [Concomitant]
     Indication: CONSTIPATION
     Route: 048
     Dates: start: 20050310
  6. LANSOPRAZOLE [Concomitant]
     Indication: GASTROOESOPHAGEAL REFLUX DISEASE
     Route: 048
     Dates: start: 20050217
  7. NEULASTA [Concomitant]
     Indication: NEUTROPENIA
     Route: 058
     Dates: start: 20050401
  8. ONDANSETRON [Concomitant]
     Indication: NAUSEA
     Route: 048
     Dates: start: 20050217
  9. PREDNISONE [Concomitant]
     Indication: FATIGUE
     Route: 048
     Dates: start: 20050224

REACTIONS (2)
  - DEHYDRATION [None]
  - STAPHYLOCOCCAL INFECTION [None]
